FAERS Safety Report 8357057-5 (Version None)
Quarter: 2012Q2

REPORT INFORMATION
  Report Type: 
  Country: None (occurrence: None)
  Receive Date: 20120514
  Receipt Date: 20120508
  Transmission Date: 20120825
  Serious: Yes (Death)
  Sender: FDA-Public Use
  Company Number: US-PFIZER INC-2012097513

PATIENT
  Sex: Male

DRUGS (25)
  1. HYDROCODONE BITARTRATE + ACETAMINOPHEN [Concomitant]
     Dosage: 7.5-500 MG/15ML ELIX; 2-3 TEASPOONS EVERY 4 HOURS PRN
  2. LORAZEPAM [Concomitant]
     Indication: ANXIETY
     Dosage: 0.5 MG, TAKE ONE TABLET BY MOUTI-L,UNDER TONGUE OR INTORECTUM EVERY 4 HOURS ASNEEDED FOR ANXIETY
     Dates: start: 20120412
  3. OMEPRAZOLE [Concomitant]
     Dosage: 20 MG, 1X/DAY
     Route: 048
     Dates: start: 20111219
  4. VANCOMYCIN [Concomitant]
     Route: 042
  5. FERROUS SULFATE [Concomitant]
     Dosage: 325 MG, 1X/DAY WITH FOOD
     Route: 048
     Dates: start: 20101216
  6. FOLIC ACID [Concomitant]
     Dosage: 1 MG, 1X/DAY
     Route: 048
     Dates: start: 20101216
  7. GEMFIBROZIL [Concomitant]
     Dosage: 600 MG, 2X/DAY WITH MORNING AND EVENING
     Route: 048
     Dates: start: 20120307
  8. PLAVIX [Concomitant]
     Dosage: 75 MBQ, 1X/DAY
     Route: 048
  9. LISINOPRIL [Concomitant]
     Dosage: 2.5 MG, 1X/DAY
     Route: 048
  10. OXYCODONE HYDROCHLORIDE [Concomitant]
     Indication: PAIN
     Dosage: 10- 20MG EVER 4HOURS, AS NEEDED
     Route: 048
     Dates: start: 20120409
  11. TYLENOL (CAPLET) [Concomitant]
     Dosage: UNK
  12. CARVEDILOL [Concomitant]
     Dosage: 6.25 MG, 2X/DAY WITH MEALS
     Route: 048
  13. DIPHENOXYLATE HCL AND ATROPINE SULFATE [Concomitant]
     Dosage: 2.5A?0.025 MG ORAL TABLET ;TAKE 2 TABLET NOW THEN I AFTER EACH LOOSE STOOL, NOT TO EXCEED 8 PER DAY
     Route: 048
     Dates: start: 20120405
  14. FUROSEMIDE [Concomitant]
     Dosage: 20 MG, 2X/DAY
     Route: 048
     Dates: start: 20120116
  15. ISOSORBIDE MONONITRATE [Concomitant]
     Dosage: 30 MG, 1X/DAY
     Route: 048
     Dates: start: 20120229
  16. ACETYLSALICYLIC ACID [Concomitant]
     Dosage: UNK
  17. POTASSIUM CHLORIDE [Concomitant]
     Dosage: 20 MEQ, 1X/DAY
     Dates: start: 20110408
  18. PRILOSEC [Concomitant]
  19. VFEND [Suspect]
     Indication: ASPERGILLOSIS
     Dosage: 200 MG, 2X/DAY
     Route: 048
     Dates: start: 20111101
  20. FENTANYL [Concomitant]
     Dosage: 72 HOUR ;APPLY 1PATCH EVERY 3 DAYS
     Route: 062
     Dates: start: 20120409
  21. PROCHLORPERAZINE MALEATE [Concomitant]
     Indication: VOMITING
  22. FINASTERIDE [Concomitant]
     Dosage: 5 MG, 1X/DAY
     Route: 048
     Dates: start: 20101216
  23. MECLIZINE HYDROCHLORIDE [Concomitant]
     Indication: DIZZINESS
     Dosage: 20 MG, 1-2 TABS EVERY 4-6 HOURS AS NEEDED
     Route: 048
     Dates: start: 20120210
  24. PROCHLORPERAZINE MALEATE [Concomitant]
     Indication: NAUSEA
     Dosage: 10 MG,TAKE1 TABLET EVERY 4-6 HOURS AS NEEDED AS DIRECTED
     Route: 048
     Dates: start: 20110330
  25. ZOSYN [Concomitant]

REACTIONS (2)
  - NON-HODGKIN'S LYMPHOMA [None]
  - NEOPLASM MALIGNANT [None]
